FAERS Safety Report 24970723 (Version 1)
Quarter: 2025Q1

REPORT INFORMATION
  Report Type: Spontaneous
  Country: CN (occurrence: CN)
  Receive Date: 20250214
  Receipt Date: 20250214
  Transmission Date: 20250409
  Serious: Yes (Hospitalization, Other)
  Sender: ELI LILLY AND COMPANY
  Company Number: CN-ELI_LILLY_AND_COMPANY-CN202502009463

PATIENT
  Age: 51 Year
  Sex: Male
  Weight: 69 kg

DRUGS (4)
  1. GEMCITABINE HYDROCHLORIDE [Suspect]
     Active Substance: GEMCITABINE HYDROCHLORIDE
     Indication: Tonsil cancer
     Route: 041
     Dates: start: 20250120, end: 20250120
  2. CARBOPLATIN [Suspect]
     Active Substance: CARBOPLATIN
     Indication: Tonsil cancer
     Route: 041
     Dates: start: 20250120, end: 20250120
  3. SODIUM CHLORIDE [Concomitant]
     Active Substance: SODIUM CHLORIDE
     Indication: Medication dilution
     Route: 041
     Dates: start: 20250120, end: 20250120
  4. DEXTROSE [Concomitant]
     Active Substance: DEXTROSE MONOHYDRATE
     Indication: Medication dilution
     Route: 041
     Dates: start: 20250120, end: 20250120

REACTIONS (3)
  - Face oedema [Recovering/Resolving]
  - Drug eruption [Recovering/Resolving]
  - Pruritus [Recovering/Resolving]

NARRATIVE: CASE EVENT DATE: 20250124
